FAERS Safety Report 25297406 (Version 1)
Quarter: 2025Q2

REPORT INFORMATION
  Report Type: Spontaneous
  Country: US (occurrence: US)
  Receive Date: 20250511
  Receipt Date: 20250511
  Transmission Date: 20250716
  Serious: No
  Sender: SANOFI AVENTIS
  Company Number: US-SA-2025SA133878

PATIENT
  Age: 51 Year
  Sex: Female

DRUGS (8)
  1. DUPIXENT [Suspect]
     Active Substance: DUPILUMAB
     Indication: Dermatitis atopic
     Route: 058
     Dates: start: 20200914
  2. DUPIXENT [Suspect]
     Active Substance: DUPILUMAB
     Route: 058
  3. VITAMIN B COMPLEX [Concomitant]
     Active Substance: CYANOCOBALAMIN\DEXPANTHENOL\NIACINAMIDE\PYRIDOXINE HYDROCHLORIDE\RIBOFLAVIN 5^-PHOSPHATE SODIUM\THIA
  4. ZINC [Concomitant]
     Active Substance: ZINC
  5. FISH OIL [Concomitant]
     Active Substance: FISH OIL
  6. BETA GLUCAN [Concomitant]
     Active Substance: BETA GLUCAN
  7. QUERCETIN [Concomitant]
     Active Substance: QUERCETIN
  8. BROMELAINS [Concomitant]
     Active Substance: BROMELAINS

REACTIONS (2)
  - Rebound atopic dermatitis [Unknown]
  - Intentional dose omission [Unknown]
